FAERS Safety Report 16812674 (Version 1)
Quarter: 2019Q3

REPORT INFORMATION
  Report Type: Spontaneous
  Country: AT (occurrence: AT)
  Receive Date: 20190916
  Receipt Date: 20190916
  Transmission Date: 20191005
  Serious: Yes (Other)
  Sender: FDA-Public Use
  Company Number: PHHY2019AT211100

PATIENT
  Sex: Male

DRUGS (2)
  1. AMPICILLIN [Suspect]
     Active Substance: AMPICILLIN
     Indication: PROPHYLAXIS
     Dosage: MATERNAL DOSE: UNK
     Route: 064
  2. AMPICILLIN [Suspect]
     Active Substance: AMPICILLIN
     Indication: FOETAL EXPOSURE DURING PREGNANCY

REACTIONS (2)
  - Foetal exposure during pregnancy [Unknown]
  - Premature baby [Unknown]
